FAERS Safety Report 8918233 (Version 3)
Quarter: 2013Q3

REPORT INFORMATION
  Report Type: Report from Study
  Country: DE (occurrence: DE)
  Receive Date: 20121120
  Receipt Date: 20130920
  Transmission Date: 20140515
  Serious: Yes (Hospitalization)
  Sender: FDA-Public Use
  Company Number: DE-PFIZER INC-2012280573

PATIENT
  Age: 76 Year
  Sex: Female
  Weight: 74 kg

DRUGS (2)
  1. TEMSIROLIMUS [Suspect]
     Indication: MYELODYSPLASTIC SYNDROME
     Dosage: 20 MG, SINGLE DOSE
     Route: 042
     Dates: start: 20120621, end: 20121031
  2. TAZOBAC [Concomitant]
     Indication: PYREXIA
     Dosage: 4.5 G, 3X/DAY
     Route: 042
     Dates: start: 20121105, end: 20121109

REACTIONS (1)
  - Febrile neutropenia [Recovered/Resolved]
